FAERS Safety Report 9445761 (Version 1)
Quarter: 2013Q3

REPORT INFORMATION
  Report Type: Spontaneous
  Country: FR (occurrence: FR)
  Receive Date: 20130807
  Receipt Date: 20130807
  Transmission Date: 20140515
  Serious: Yes (Death)
  Sender: FDA-Public Use
  Company Number: FR-BRISTOL-MYERS SQUIBB COMPANY-19144856

PATIENT
  Age: 33 Year
  Sex: Male

DRUGS (7)
  1. ETOPOPHOS [Suspect]
     Indication: B-CELL LYMPHOMA
     Dosage: 300 MG/M2 PER COURSE
     Dates: start: 20130329, end: 20130610
  2. HOLOXAN [Suspect]
     Indication: B-CELL LYMPHOMA
     Dates: start: 20130329, end: 20130610
  3. MABTHERA [Suspect]
     Indication: B-CELL LYMPHOMA
     Dates: start: 20130329, end: 20130610
  4. BACTRIM FORTE [Concomitant]
  5. ZELITREX [Concomitant]
     Dosage: 1DF:500
  6. SPECIAFOLDINE [Concomitant]
  7. INNOHEP [Concomitant]

REACTIONS (2)
  - Septic shock [Fatal]
  - Pancytopenia [Fatal]
